FAERS Safety Report 5320184-0 (Version None)
Quarter: 2007Q2

REPORT INFORMATION
  Report Type: 
  Country: None (occurrence: None)
  Receive Date: 20070503
  Receipt Date: 20070419
  Transmission Date: 20071010
  Serious: Yes (Other)
  Sender: FDA-Public Use
  Company Number: 2007S1003410

PATIENT
  Age: 45 Year
  Sex: Female

DRUGS (10)
  1. ESTRADIOL [Suspect]
     Indication: MENOPAUSE
     Dosage: 0.05 MG/DAY; WEEKLY; TRANSDERMAL
     Route: 062
     Dates: start: 20070407
  2. LEVOTHYROXINE SODIUM [Concomitant]
  3. SIMVASTATIN [Concomitant]
  4. TRAMADOL HCL [Concomitant]
  5. ALPRAZOLAM [Concomitant]
  6. ROPINIROLE HCL [Concomitant]
  7. ZOLPIDEM TARTRATE [Concomitant]
  8. ESOMEPRAZOLE MAGNESIUM [Concomitant]
  9. METFORMIN HYDROCHLORIDE [Concomitant]
  10. GABAPENTIN [Concomitant]

REACTIONS (8)
  - ABDOMINAL PAIN UPPER [None]
  - ALOPECIA [None]
  - BLOOD GLUCOSE INCREASED [None]
  - DRUG INEFFECTIVE [None]
  - HEADACHE [None]
  - HOT FLUSH [None]
  - NAUSEA [None]
  - VOMITING [None]
